FAERS Safety Report 7628268-9 (Version None)
Quarter: 2011Q3

REPORT INFORMATION
  Report Type: 
  Country: None (occurrence: None)
  Receive Date: 20110720
  Receipt Date: 20110720
  Transmission Date: 20111222
  Serious: Yes (Other)
  Sender: FDA-Public Use
  Company Number: None

PATIENT
  Age: 47 Year
  Sex: Male
  Weight: 96.6162 kg

DRUGS (1)
  1. BUPROPION HCL [Suspect]
     Indication: DYSTHYMIC DISORDER
     Dosage: 150 MG DAILY ORAL
     Route: 048
     Dates: start: 20100801, end: 20110201

REACTIONS (1)
  - FEELING ABNORMAL [None]
